FAERS Safety Report 5683661-9 (Version None)
Quarter: 2008Q1

REPORT INFORMATION
  Report Type: 
  Country: None (occurrence: None)
  Receive Date: 20080328
  Receipt Date: 20061128
  Transmission Date: 20080703
  Serious: Yes (Other)
  Sender: FDA-Public Use
  Company Number: US-BAYER-US-2006-002261

PATIENT
  Sex: Female

DRUGS (3)
  1. MIRENA [Suspect]
     Route: 015
     Dates: start: 20020101
  2. ORAL CONTRACEPTIVE NOS [Concomitant]
     Indication: ORAL CONTRACEPTION
     Route: 048
     Dates: start: 20030101, end: 20051201
  3. VITAMIN TAB [Concomitant]

REACTIONS (2)
  - PREGNANCY WITH CONTRACEPTIVE DEVICE [None]
  - UTERINE RUPTURE [None]
